FAERS Safety Report 17488670 (Version 1)
Quarter: 2020Q1

REPORT INFORMATION
  Report Type: Spontaneous
  Country: US (occurrence: US)
  Receive Date: 20200220
  Receipt Date: 20200220
  Transmission Date: 20200409
  Serious: No
  Sender: FDA-Public Use
  Company Number: None

PATIENT
  Age: 46 Year
  Sex: Female

DRUGS (1)
  1. HUMIRA [Suspect]
     Active Substance: ADALIMUMAB
     Indication: COLITIS ULCERATIVE
     Dosage: ?          OTHER STRENGTH:40MG/0.8ML;OTHER FREQUENCY:EVERY 2 WEEKS;?
     Route: 058
     Dates: start: 20200203

REACTIONS (7)
  - Constipation [None]
  - Muscle spasms [None]
  - Insomnia [None]
  - Diarrhoea [None]
  - Decreased appetite [None]
  - Arthralgia [None]
  - Injection site pain [None]

NARRATIVE: CASE EVENT DATE: 20200203
